FAERS Safety Report 25166781 (Version 1)
Quarter: 2025Q2

REPORT INFORMATION
  Report Type: Spontaneous
  Country: DE (occurrence: DE)
  Receive Date: 20250407
  Receipt Date: 20250407
  Transmission Date: 20250717
  Serious: Yes (Life-Threatening)
  Sender: BAYER
  Company Number: DE-BAYER-2025A043730

PATIENT
  Sex: Female
  Weight: 2.73 kg

DRUGS (2)
  1. CIPROFLOXACIN HYDROCHLORIDE [Suspect]
     Active Substance: CIPROFLOXACIN HYDROCHLORIDE
     Indication: Pneumonia klebsiella
     Route: 064
  2. CIPROFLOXACIN [Suspect]
     Active Substance: CIPROFLOXACIN
     Indication: Pneumonia klebsiella
     Route: 048

REACTIONS (4)
  - Dependence on respirator [None]
  - Foetal exposure during pregnancy [None]
  - Premature baby [None]
  - Positive airway pressure therapy [None]
